FAERS Safety Report 5648678-9 (Version None)
Quarter: 2008Q1

REPORT INFORMATION
  Report Type: 
  Country: None (occurrence: None)
  Receive Date: 20080304
  Receipt Date: 20080228
  Transmission Date: 20080703
  Serious: Yes (Other)
  Sender: FDA-Public Use
  Company Number: B0504163A

PATIENT
  Age: 11 Year
  Sex: Male
  Weight: 40 kg

DRUGS (6)
  1. RELENZA [Suspect]
     Indication: INFLUENZA
     Dosage: 10MG TWICE PER DAY
     Route: 055
     Dates: start: 20071227, end: 20071227
  2. THEO-DUR [Concomitant]
     Indication: ASTHMA
     Dosage: 400MG PER DAY
     Route: 048
  3. HOKUNALIN [Concomitant]
     Indication: ASTHMA
     Dosage: 1MG PER DAY
     Route: 062
  4. MYSLEE [Concomitant]
     Indication: SLEEP DISORDER
     Dosage: 3G PER DAY
     Route: 048
  5. ADOAIR [Concomitant]
     Indication: ASTHMA
     Route: 055
  6. TAMIFLU [Concomitant]
     Indication: INFLUENZA
     Dosage: 150MG PER DAY
     Route: 048
     Dates: start: 20071229, end: 20071231

REACTIONS (3)
  - ABNORMAL BEHAVIOUR [None]
  - INCOHERENT [None]
  - RESTLESSNESS [None]
